FAERS Safety Report 5029808-9 (Version None)
Quarter: 2006Q2

REPORT INFORMATION
  Report Type: 
  Country: None (occurrence: None)
  Receive Date: 20060614
  Receipt Date: 20051020
  Transmission Date: 20061013
  Serious: Yes (Hospitalization, Disabling)
  Sender: FDA-Public Use
  Company Number: 5849

PATIENT
  Age: 10 Year
  Sex: Male

DRUGS (3)
  1. IBUPROFEN, 200 MG, PERRIGO [Suspect]
     Indication: PAIN
     Dosage: 400 MG/Q 6 HOURS/ORALLY
     Route: 048
     Dates: start: 20040603, end: 20040606
  2. IBUPROFEN, 400 MG, PERRIGO [Suspect]
     Indication: PAIN
     Dosage: 400 MG, Q 6 HOURS, ORALLY
     Route: 048
     Dates: start: 20040603, end: 20040613
  3. ALOTHANE ANESTHESIA [Concomitant]

REACTIONS (17)
  - ANXIETY [None]
  - COAGULOPATHY [None]
  - COORDINATION ABNORMAL [None]
  - DEHYDRATION [None]
  - DEPRESSION [None]
  - DIALYSIS [None]
  - FEAR [None]
  - GANGRENE [None]
  - HEPATIC FAILURE [None]
  - HEPATORENAL SYNDROME [None]
  - HYPOGLYCAEMIA [None]
  - HYPOTENSION [None]
  - LIVER TRANSPLANT [None]
  - RASH [None]
  - SKIN GRAFT [None]
  - TOE AMPUTATION [None]
  - TRANSPLANT FAILURE [None]
